FAERS Safety Report 23995744 (Version 1)
Quarter: 2024Q2

REPORT INFORMATION
  Report Type: Spontaneous
  Country: JP (occurrence: JP)
  Receive Date: 20240620
  Receipt Date: 20240620
  Transmission Date: 20240716
  Serious: Yes (Other)
  Sender: FDA-Public Use
  Company Number: JP-NAPPMUNDI-GBR-2024-0117433

PATIENT
  Age: 55 Year
  Sex: Male

DRUGS (1)
  1. OXYCODONE HYDROCHLORIDE [Suspect]
     Active Substance: OXYCODONE HYDROCHLORIDE
     Indication: Product used for unknown indication
     Dosage: UNK
     Route: 048
     Dates: start: 20231004, end: 20240116

REACTIONS (3)
  - Hypoglycaemia [Recovered/Resolved]
  - Hypoglycaemia [Unknown]
  - Constipation [Unknown]

NARRATIVE: CASE EVENT DATE: 20231228
